FAERS Safety Report 8846969 (Version 1)
Quarter: 2012Q4

REPORT INFORMATION
  Report Type: Spontaneous
  Country: US (occurrence: None)
  Receive Date: 20121017
  Receipt Date: 20121017
  Transmission Date: 20130627
  Serious: Yes (Death)
  Sender: FDA-Public Use
  Company Number: None

PATIENT
  Age: 97 Year
  Sex: Female
  Weight: 45.36 kg

DRUGS (2)
  1. ATIVAN [Suspect]
     Indication: AGITATION
     Route: 042
     Dates: start: 20120510, end: 20120511
  2. MORPHINE [Concomitant]

REACTIONS (5)
  - Convulsion [None]
  - Heart rate increased [None]
  - Coma [None]
  - Tremor [None]
  - Cardio-respiratory arrest [None]
